FAERS Safety Report 9536235 (Version 2)
Quarter: 2013Q3

REPORT INFORMATION
  Report Type: Spontaneous
  Country: US (occurrence: US)
  Receive Date: 20130919
  Receipt Date: 20130919
  Transmission Date: 20140515
  Serious: Yes (Other)
  Sender: FDA-Public Use
  Company Number: US-BANPHARM-20131570

PATIENT
  Age: 52 Year
  Sex: Female
  Weight: 127.01 kg

DRUGS (5)
  1. LOPERAMIDE HCL CAPSULES, 2 MG [Suspect]
     Indication: DIARRHOEA
     Dates: start: 20130727, end: 20130729
  2. LISINOPRIL 20 MG [Concomitant]
  3. BUSPIRONE HCL 15 MG [Concomitant]
  4. OLANZAPINE 10 MG [Concomitant]
  5. DAYPRO 600 MG [Concomitant]

REACTIONS (3)
  - Gastroenteritis salmonella [Unknown]
  - Dehydration [Unknown]
  - Drug ineffective [Unknown]
